FAERS Safety Report 9235010 (Version 1)
Quarter: 2013Q2

REPORT INFORMATION
  Report Type: Spontaneous
  Country: US (occurrence: US)
  Receive Date: 20130416
  Receipt Date: 20130416
  Transmission Date: 20140414
  Serious: Yes (Life-Threatening, Other)
  Sender: FDA-Public Use
  Company Number: US-ROXANE LABORATORIES, INC.-2013-RO-00473RO

PATIENT
  Age: 63 Year
  Sex: Female
  Weight: 109 kg

DRUGS (3)
  1. HYDROMORPHONE [Suspect]
     Indication: PAIN
     Dosage: 1 MG
  2. HYDROMORPHONE [Suspect]
  3. MORPHINE [Suspect]
     Indication: PAIN
     Dosage: 4 MG

REACTIONS (3)
  - Respiratory depression [Recovered/Resolved]
  - Unresponsive to stimuli [Recovered/Resolved]
  - Oxygen saturation decreased [Unknown]
